FAERS Safety Report 14564823 (Version 2)
Quarter: 2019Q4

REPORT INFORMATION
  Report Type: Spontaneous
  Country: FR (occurrence: FR)
  Receive Date: 20180223
  Receipt Date: 20191212
  Transmission Date: 20200122
  Serious: Yes (Death, Other)
  Sender: FDA-Public Use
  Company Number: FR-BAXTER-2018BAX005388

PATIENT
  Age: 63 Year
  Sex: Female

DRUGS (21)
  1. LENALIDOMIDE [Suspect]
     Active Substance: LENALIDOMIDE
     Indication: PARAPROTEINAEMIA
     Route: 065
     Dates: start: 201401
  2. ENDOXAN 50 MG, COMPRIM? ENROB? [Suspect]
     Active Substance: CYCLOPHOSPHAMIDE
     Dosage: ON DAYS 1,8,15
     Route: 048
     Dates: start: 201308
  3. VELCADE [Suspect]
     Active Substance: BORTEZOMIB
     Indication: RENAL AMYLOIDOSIS
     Dosage: ON DAYS 1, 8, 15 AND 21, OF A 28-DAY CYCLE
     Route: 058
  4. VELCADE [Suspect]
     Active Substance: BORTEZOMIB
     Dosage: DOSAGE FORM: LYOPHILIZED POWDER, ON DAYS 1, 8, 11 AND 21, OF A 28 DAYS CYCLE
     Route: 058
     Dates: start: 201308
  5. LENALIDOMIDE [Suspect]
     Active Substance: LENALIDOMIDE
     Indication: KAPOSI^S SARCOMA
     Route: 065
     Dates: start: 201401
  6. ENDOXAN 50 MG, COMPRIM? ENROB? [Suspect]
     Active Substance: CYCLOPHOSPHAMIDE
     Indication: RENAL AMYLOIDOSIS
     Dosage: ON DAYS 1,8,15
     Route: 048
     Dates: start: 201308
  7. ENDOXAN 50 MG, COMPRIM? ENROB? [Suspect]
     Active Substance: CYCLOPHOSPHAMIDE
     Indication: GASTROINTESTINAL AMYLOIDOSIS
     Dosage: ON DAYS 1,8,15
     Route: 048
     Dates: start: 201308
  8. DEXAMETHASONE SALT NOT SPECIFIED [Suspect]
     Active Substance: DEXAMETHASONE
     Indication: GASTROINTESTINAL AMYLOIDOSIS
     Route: 048
     Dates: start: 201308
  9. DEXAMETHASONE SALT NOT SPECIFIED [Suspect]
     Active Substance: DEXAMETHASONE
     Route: 048
  10. DEXAMETHASONE SALT NOT SPECIFIED [Suspect]
     Active Substance: DEXAMETHASONE
     Route: 065
     Dates: start: 201401
  11. VELCADE [Suspect]
     Active Substance: BORTEZOMIB
     Dosage: DOSAGE FORM: LYOPHILIZED POWDER, ON DAYS 1, 8, 11 AND 21, OF A 28 DAYS CYCLE
     Route: 058
     Dates: start: 201308
  12. ENDOXAN 50 MG, COMPRIM? ENROB? [Suspect]
     Active Substance: CYCLOPHOSPHAMIDE
     Dosage: ON DAYS 1,8,15
     Route: 048
  13. DEXAMETHASONE SALT NOT SPECIFIED [Suspect]
     Active Substance: DEXAMETHASONE
     Indication: PARAPROTEINAEMIA
     Route: 065
     Dates: start: 201401
  14. DEXAMETHASONE SALT NOT SPECIFIED [Suspect]
     Active Substance: DEXAMETHASONE
     Indication: RENAL AMYLOIDOSIS
     Route: 048
     Dates: start: 201308
  15. VELCADE [Suspect]
     Active Substance: BORTEZOMIB
     Indication: GASTROINTESTINAL AMYLOIDOSIS
     Dosage: ON DAYS 1, 8, 15 AND 21, OF A 28-DAY CYCLE
     Route: 058
     Dates: start: 201308
  16. DEXAMETHASONE SALT NOT SPECIFIED [Suspect]
     Active Substance: DEXAMETHASONE
     Route: 065
     Dates: start: 201401
  17. VELCADE [Suspect]
     Active Substance: BORTEZOMIB
     Dosage: ON DAYS 1, 8, 15 AND 21, OF A 28-DAY CYCLE
     Route: 058
  18. DEXAMETHASONE SALT NOT SPECIFIED [Suspect]
     Active Substance: DEXAMETHASONE
     Route: 048
  19. DEXAMETHASONE SALT NOT SPECIFIED [Suspect]
     Active Substance: DEXAMETHASONE
     Route: 048
     Dates: start: 201308
  20. DEXAMETHASONE SALT NOT SPECIFIED [Suspect]
     Active Substance: DEXAMETHASONE
     Route: 048
  21. VELCADE [Suspect]
     Active Substance: BORTEZOMIB
     Dosage: ON DAYS 1, 8, 15 AND 21, OF A 28-DAY CYCLE
     Route: 058
     Dates: start: 201308

REACTIONS (9)
  - Papule [Fatal]
  - Kaposi^s sarcoma [Fatal]
  - Infection reactivation [Fatal]
  - Enterococcal bacteraemia [Fatal]
  - Off label use [Unknown]
  - Septic shock [Fatal]
  - Skin lesion [Fatal]
  - Renal impairment [Fatal]
  - Human herpesvirus 8 infection [Fatal]

NARRATIVE: CASE EVENT DATE: 201310
